FAERS Safety Report 4771037-8 (Version None)
Quarter: 2005Q3

REPORT INFORMATION
  Report Type: 
  Country: None (occurrence: None)
  Receive Date: 20050914
  Receipt Date: 20050831
  Transmission Date: 20060218
  Serious: Yes (Other)
  Sender: FDA-Public Use
  Company Number: GBS050918335

PATIENT
  Sex: Female
  Weight: 45 kg

DRUGS (1)
  1. XIGRIS [Suspect]
     Indication: SEPSIS
     Dosage: 24 UG/KG  HR
     Dates: start: 20050830, end: 20050831

REACTIONS (1)
  - PLATELET COUNT DECREASED [None]
